FAERS Safety Report 5595205-0 (Version None)
Quarter: 2008Q1

REPORT INFORMATION
  Report Type: 
  Country: None (occurrence: None)
  Receive Date: 20080117
  Receipt Date: 20080107
  Transmission Date: 20080703
  Serious: Yes (Other)
  Sender: FDA-Public Use
  Company Number: US-PFIZER INC-2008003041

PATIENT
  Sex: Female
  Weight: 83.9 kg

DRUGS (8)
  1. CHANTIX [Suspect]
     Indication: SMOKING CESSATION THERAPY
     Dosage: TEXT:EVERY DAY
     Dates: start: 20071231, end: 20080107
  2. ATENOLOL [Concomitant]
  3. LASIX [Concomitant]
  4. ACTOS [Concomitant]
  5. VYTORIN [Concomitant]
  6. LEVOXYL [Concomitant]
  7. PLAVIX [Concomitant]
  8. VICODIN [Concomitant]

REACTIONS (4)
  - DIZZINESS [None]
  - GAIT DISTURBANCE [None]
  - IMPAIRED DRIVING ABILITY [None]
  - INNER EAR DISORDER [None]
